FAERS Safety Report 5297653-5 (Version None)
Quarter: 2007Q1

REPORT INFORMATION
  Report Type: 
  Country: None (occurrence: None)
  Receive Date: 20070201
  Receipt Date: 20061025
  Transmission Date: 20070707
  Serious: No
  Sender: FDA-Public Use
  Company Number: 2006PV023930

PATIENT
  Age: 65 Year
  Sex: Female
  Weight: 90.7194 kg

DRUGS (1)
  1. BYETTA [Suspect]
     Indication: WEIGHT DECREASED
     Dosage: 10 MCG;BID;SC
     Route: 058
     Dates: start: 20061001

REACTIONS (2)
  - GASTROOESOPHAGEAL REFLUX DISEASE [None]
  - WEIGHT DECREASED [None]
